FAERS Safety Report 4604080-X (Version None)
Quarter: 2005Q1

REPORT INFORMATION
  Report Type: 
  Country: None (occurrence: None)
  Receive Date: 20050309
  Receipt Date: 20050309
  Transmission Date: 20050727
  Serious: Yes (Life-Threatening)
  Sender: FDA-Public Use
  Company Number: None

PATIENT
  Sex: Female
  Weight: 82.72 kg

DRUGS (1)
  1. BAYGAM [Suspect]
     Indication: SELECTIVE IGA IMMUNODEFICIENCY
     Dosage: 10 ML 6 DAYSON 2 OFF SQ
     Route: 058
     Dates: start: 20030904, end: 20050307

REACTIONS (3)
  - ANURIA [None]
  - RENAL DISORDER [None]
  - RENAL FAILURE [None]
